FAERS Safety Report 10269901 (Version 2)
Quarter: 2014Q3

REPORT INFORMATION
  Report Type: Report from Study
  Country: US (occurrence: None)
  Receive Date: 20140626
  Receipt Date: 20140711
  Transmission Date: 20150326
  Serious: Yes (Hospitalization, Other)
  Sender: FDA-Public Use
  Company Number: AUR-APL-2014-06663

PATIENT
  Age: 54 Year
  Sex: Male
  Weight: 78.9 kg

DRUGS (9)
  1. NEXIUM [Suspect]
     Active Substance: ESOMEPRAZOLE MAGNESIUM
     Indication: PERFORATED ULCER
     Route: 048
     Dates: start: 2001, end: 201405
  2. HYDROCODONE (HYDROCODONE) [Concomitant]
     Active Substance: HYDROCODONE
  3. LISINOPRIL. [Suspect]
     Active Substance: LISINOPRIL
     Indication: BLOOD PRESSURE
     Route: 048
     Dates: start: 2002
  4. HYDROCHLOROTHIAZIDE (HYDROCHLOROTHIAZIDE) [Concomitant]
     Active Substance: HYDROCHLOROTHIAZIDE
  5. SULFUR (SULFUR) [Concomitant]
  6. NEXIUM [Suspect]
     Active Substance: ESOMEPRAZOLE MAGNESIUM
     Indication: PERFORATED ULCER
     Route: 048
     Dates: start: 20140526
  7. METHYLPREDNISOLONE (METHYLPREDNISOLONE) [Suspect]
     Active Substance: METHYLPREDNISOLONE
     Indication: PRODUCT USED FOR UNKNOWN INDICATION
  8. OMEPRAZOLE (OMEPRAZOLE) [Suspect]
     Active Substance: OMEPRAZOLE
     Indication: PERFORATED ULCER
     Route: 048
     Dates: start: 201405, end: 201405
  9. PRILOSEC [Suspect]
     Active Substance: OMEPRAZOLE MAGNESIUM
     Indication: PERFORATED ULCER
     Route: 048
     Dates: start: 201405, end: 201405

REACTIONS (17)
  - Hypersensitivity [None]
  - Swelling face [None]
  - Epigastric discomfort [None]
  - Embolism [None]
  - Eye swelling [None]
  - Drug dose omission [None]
  - Off label use [None]
  - Joint lock [None]
  - Rotator cuff syndrome [None]
  - Activities of daily living impaired [None]
  - Tendon rupture [None]
  - Swollen tongue [None]
  - Hypertension [None]
  - Abscess [None]
  - Drug ineffective [None]
  - Lip swelling [None]
  - Nasal oedema [None]

NARRATIVE: CASE EVENT DATE: 2002
